FAERS Safety Report 4616334-1 (Version None)
Quarter: 2005Q1

REPORT INFORMATION
  Report Type: 
  Country: None (occurrence: None)
  Receive Date: 20050321
  Receipt Date: 20050307
  Transmission Date: 20050727
  Serious: Yes (Other)
  Sender: FDA-Public Use
  Company Number: HQWYE882508MAR05

PATIENT
  Sex: Female
  Weight: 68.1 kg

DRUGS (3)
  1. PROTONIX [Suspect]
     Dosage: 40 MG 1X PER 1 DAY, ORAL
     Route: 048
     Dates: start: 20030114, end: 20041030
  2. NADOLOL [Concomitant]
  3. ASPIRIN [Concomitant]

REACTIONS (9)
  - ASTHENIA [None]
  - CARDIAC VALVE DISEASE [None]
  - CARDIOMEGALY [None]
  - CHEST PAIN [None]
  - DIZZINESS [None]
  - HYPERHIDROSIS [None]
  - LUNG DISORDER [None]
  - TREMOR [None]
  - VITAMIN B12 DEFICIENCY [None]
